FAERS Safety Report 15857168 (Version 3)
Quarter: 2019Q1

REPORT INFORMATION
  Report Type: Spontaneous
  Country: FR (occurrence: FR)
  Receive Date: 20190123
  Receipt Date: 20190314
  Transmission Date: 20190417
  Serious: Yes (Other)
  Sender: FDA-Public Use
  Company Number: FR-ASTRAZENECA-2019SE13078

PATIENT
  Age: 74 Year
  Sex: Female
  Weight: 48 kg

DRUGS (4)
  1. LYNPARZA [Suspect]
     Active Substance: OLAPARIB
     Indication: OVARIAN CANCER
     Dosage: 400.0MG UNKNOWN
     Route: 048
     Dates: start: 20180910, end: 20181119
  2. LYNPARZA [Suspect]
     Active Substance: OLAPARIB
     Indication: OVARIAN CANCER
     Dosage: 400.0MG UNKNOWN
     Route: 048
     Dates: start: 20180910, end: 20181119
  3. LYNPARZA [Suspect]
     Active Substance: OLAPARIB
     Indication: OVARIAN CANCER
     Dosage: 600.0MG UNKNOWN
     Route: 048
     Dates: start: 20181119
  4. LYNPARZA [Suspect]
     Active Substance: OLAPARIB
     Indication: OVARIAN CANCER
     Dosage: 600.0MG UNKNOWN
     Route: 048
     Dates: start: 20181119

REACTIONS (3)
  - Myelodysplastic syndrome [Recovered/Resolved]
  - Erythroblastosis [Unknown]
  - Malignant neoplasm progression [Unknown]

NARRATIVE: CASE EVENT DATE: 20181017
